FAERS Safety Report 22636515 (Version 1)
Quarter: 2023Q2

REPORT INFORMATION
  Report Type: Spontaneous
  Country: US (occurrence: US)
  Receive Date: 20230623
  Receipt Date: 20230623
  Transmission Date: 20230722
  Serious: Yes (Other)
  Sender: FDA-Public Use
  Company Number: US-PFIZER INC-202300224492

PATIENT
  Age: 45 Year
  Sex: Female

DRUGS (1)
  1. DIFLUCAN [Suspect]
     Active Substance: FLUCONAZOLE
     Indication: Lupus-like syndrome
     Dosage: 150 MG
     Route: 048
     Dates: start: 20230615

REACTIONS (2)
  - Rash pruritic [Unknown]
  - Off label use [Unknown]

NARRATIVE: CASE EVENT DATE: 20230615
